FAERS Safety Report 8692207 (Version 2)
Quarter: 2012Q4

REPORT INFORMATION
  Report Type: 
  Country: JP (occurrence: JP)
  Receive Date: 20120730
  Receipt Date: 20121129
  Transmission Date: 20130627
  Serious: Yes (Hospitalization)
  Sender: FDA-Public Use
  Company Number: JP-SHIRE-ALL1-2012-03597

PATIENT
  Age: 66 Year
  Sex: Female

DRUGS (14)
  1. FOSRENOL [Suspect]
     Indication: HYPERPHOSPHATAEMIA
     Dosage: 750mg, Unk (750 mg daily total)
     Route: 048
     Dates: start: 20090601, end: 20110620
  2. FOSRENOL [Suspect]
     Dosage: UNK mg, Unk (750 mg daily total)
     Route: 048
     Dates: start: 20111206
  3. CALTAN [Concomitant]
     Indication: HYPERPHOSPHATAEMIA
     Dosage: 3000 mg, Unknown
     Route: 048
     Dates: start: 20100705, end: 20110508
  4. CALTAN [Concomitant]
     Dosage: 4500 mg, Unknown
     Route: 048
     Dates: start: 20110509, end: 20110829
  5. CALTAN [Concomitant]
     Dosage: 1500 mg, Unknown
     Route: 048
     Dates: start: 20111021, end: 20111206
  6. EPOGIN [Concomitant]
     Indication: PRODUCT USED FOR UNKNOWN INDICATION
     Dosage: 4500 IU, 1x/week
     Route: 041
  7. FESIN                              /00023550/ [Concomitant]
     Indication: PRODUCT USED FOR UNKNOWN INDICATION
     Dosage: 1 DF, 1x/week
     Route: 041
  8. RHUBARB DRY EXTRACT [Concomitant]
     Indication: PRODUCT USED FOR UNKNOWN INDICATION
     Dosage: 3 g, Unknown
     Route: 048
  9. EURODIN                            /00425901/ [Concomitant]
     Indication: PRODUCT USED FOR UNKNOWN INDICATION
     Dosage: 2 mg, Unknown
     Route: 048
  10. PLETAAL [Concomitant]
     Indication: PRODUCT USED FOR UNKNOWN INDICATION
     Dosage: 200 mg, Unknown
     Route: 048
  11. BAYASPIRIN [Concomitant]
     Indication: PRODUCT USED FOR UNKNOWN INDICATION
     Dosage: 100 mg, Unknown
     Route: 048
  12. WARFARIN POTASSIUM [Concomitant]
     Indication: PRODUCT USED FOR UNKNOWN INDICATION
     Dosage: 2 mg, Unknown
     Route: 048
  13. AZEPTIN                            /00884002/ [Concomitant]
     Indication: PRODUCT USED FOR UNKNOWN INDICATION
     Dosage: 2 DF, Unknown
     Route: 048
  14. RISUMIC [Concomitant]
     Indication: PRODUCT USED FOR UNKNOWN INDICATION
     Dosage: 20 mg, Unknown
     Route: 048

REACTIONS (6)
  - Melaena [Recovering/Resolving]
  - Haematoma [Recovering/Resolving]
  - Muscular weakness [Not Recovered/Not Resolved]
  - Excoriation [Recovering/Resolving]
  - Localised infection [Not Recovered/Not Resolved]
  - Hypocalcaemia [Recovered/Resolved]
